FAERS Safety Report 20244356 (Version 1)
Quarter: 2021Q4

REPORT INFORMATION
  Report Type: Spontaneous
  Country: US (occurrence: US)
  Receive Date: 20211229
  Receipt Date: 20211229
  Transmission Date: 20220303
  Serious: Yes (Other)
  Sender: FDA-Public Use
  Company Number: US-COOPERSURGICAL, INC.-US-2021CPS003066

PATIENT
  Age: 22 Year
  Sex: Female
  Weight: 76.644 kg

DRUGS (2)
  1. PARAGARD T 380A [Suspect]
     Active Substance: COPPER
     Indication: Contraception
     Dosage: UNK
     Route: 015
     Dates: start: 20211006, end: 20211006
  2. ULIPRISTAL ACETATE [Concomitant]
     Active Substance: ULIPRISTAL ACETATE
     Indication: Product used for unknown indication
     Dosage: 30 MG, UNK
     Route: 065

REACTIONS (3)
  - Off label use [Unknown]
  - Complication of device insertion [Recovered/Resolved]
  - Device placement issue [Recovered/Resolved]

NARRATIVE: CASE EVENT DATE: 20211006
